FAERS Safety Report 4345363-0 (Version None)
Quarter: 2004Q2

REPORT INFORMATION
  Report Type: 
  Country: None (occurrence: None)
  Receive Date: 20040422
  Receipt Date: 20040422
  Transmission Date: 20050107
  Serious: Yes (Hospitalization)
  Sender: FDA-Public Use
  Company Number: None

PATIENT
  Sex: Female

DRUGS (5)
  1. DURAGESIC [Suspect]
     Indication: PAIN
     Dosage: 75 MCG EVERY 72H TOPICAL
     Route: 061
     Dates: start: 20040219, end: 20040409
  2. LIPITOR [Concomitant]
  3. BEXTRA [Concomitant]
  4. AMBIEN [Concomitant]
  5. LIDODERM [Concomitant]

REACTIONS (5)
  - APPLICATION SITE DERMATITIS [None]
  - BLOOD PRESSURE INCREASED [None]
  - HEART RATE INCREASED [None]
  - INADEQUATE ANALGESIA [None]
  - SOMNOLENCE [None]
